FAERS Safety Report 11103466 (Version 1)
Quarter: 2015Q2

REPORT INFORMATION
  Report Type: Spontaneous
  Country: GB (occurrence: GB)
  Receive Date: 20150511
  Receipt Date: 20150511
  Transmission Date: 20150821
  Serious: Yes (Other)
  Sender: FDA-Public Use
  Company Number: GB-TEVA-561071ACC

PATIENT
  Age: 13 Year
  Sex: Female

DRUGS (2)
  1. CETIRIZINE [Suspect]
     Active Substance: CETIRIZINE HYDROCHLORIDE
     Indication: SEASONAL ALLERGY
     Dosage: 10 MG
     Route: 048
     Dates: start: 20150425, end: 20150425
  2. PIRITON [Concomitant]
     Active Substance: CHLORPHENIRAMINE MALEATE

REACTIONS (4)
  - Agitation [Recovered/Resolved]
  - Screaming [Recovered/Resolved]
  - Hallucination [Recovered/Resolved]
  - Prosopagnosia [Recovered/Resolved]

NARRATIVE: CASE EVENT DATE: 20150425
